FAERS Safety Report 8211240-8 (Version None)
Quarter: 2012Q1

REPORT INFORMATION
  Report Type: 
  Country: None (occurrence: None)
  Receive Date: 20120315
  Receipt Date: 20120309
  Transmission Date: 20120608
  Serious: No
  Sender: FDA-Public Use
  Company Number: US-PFIZER INC-2012021728

PATIENT
  Sex: Female
  Weight: 23.1 kg

DRUGS (1)
  1. GENOTROPIN [Suspect]
     Indication: GROWTH RETARDATION
     Dosage: 1.4 MG, DAILY
     Route: 058
     Dates: start: 20111005, end: 20111201

REACTIONS (2)
  - INCORRECT DOSE ADMINISTERED [None]
  - HEADACHE [None]
